FAERS Safety Report 20353945 (Version 1)
Quarter: 2022Q1

REPORT INFORMATION
  Report Type: Spontaneous
  Country: FR (occurrence: FR)
  Receive Date: 20220120
  Receipt Date: 20220120
  Transmission Date: 20220423
  Serious: Yes (Other)
  Sender: FDA-Public Use
  Company Number: FR-SA-2022SA011237

PATIENT
  Sex: Female

DRUGS (5)
  1. INSULIN LISPRO [Suspect]
     Active Substance: INSULIN LISPRO
     Indication: Type 2 diabetes mellitus
  2. INSULIN GLARGINE [Suspect]
     Active Substance: INSULIN GLARGINE
     Indication: Type 2 diabetes mellitus
  3. INSULIN ASPART [Suspect]
     Active Substance: INSULIN ASPART
     Indication: Type 2 diabetes mellitus
  4. TACROLIMUS [Concomitant]
     Active Substance: TACROLIMUS
     Indication: Prophylaxis against transplant rejection
  5. MYCOPHENOLATE MOFETIL [Concomitant]
     Active Substance: MYCOPHENOLATE MOFETIL
     Indication: Prophylaxis against transplant rejection

REACTIONS (8)
  - Amyloidosis [Recovering/Resolving]
  - Acanthosis nigricans [Recovering/Resolving]
  - Hyperkeratosis [Recovering/Resolving]
  - Injection site discolouration [Recovering/Resolving]
  - Injection site plaque [Recovering/Resolving]
  - Injection site induration [Not Recovered/Not Resolved]
  - Papilloma [Recovering/Resolving]
  - Acanthosis [Recovering/Resolving]
